FAERS Safety Report 23200273 (Version 2)
Quarter: 2024Q2

REPORT INFORMATION
  Report Type: Spontaneous
  Country: US (occurrence: US)
  Receive Date: 20231118
  Receipt Date: 20240416
  Transmission Date: 20240715
  Serious: No
  Sender: FDA-Public Use
  Company Number: US-SA-SAC20231116000777

PATIENT
  Age: 45 Year
  Sex: Female

DRUGS (2)
  1. DUPIXENT [Suspect]
     Active Substance: DUPILUMAB
     Indication: Dermatitis
     Dosage: 300 MG, QOW
     Route: 058
     Dates: start: 202012
  2. DUPIXENT [Suspect]
     Active Substance: DUPILUMAB
     Indication: Dermatitis atopic

REACTIONS (6)
  - Visual impairment [Unknown]
  - Condition aggravated [Unknown]
  - Product use in unapproved indication [Unknown]
  - Pruritus [Unknown]
  - Burning sensation [Unknown]
  - Rash erythematous [Unknown]

NARRATIVE: CASE EVENT DATE: 20201201
